FAERS Safety Report 9260506 (Version 1)
Quarter: 2013Q2

REPORT INFORMATION
  Report Type: Other
  Country: US (occurrence: US)
  Receive Date: 20130429
  Receipt Date: 20130429
  Transmission Date: 20140414
  Serious: Yes (Other)
  Sender: FDA-Public Use
  Company Number: US-SHIRE-ALL1-2013-02459

PATIENT
  Sex: Male
  Weight: 94.33 kg

DRUGS (8)
  1. VYVANSE [Suspect]
     Indication: ATTENTION DEFICIT/HYPERACTIVITY DISORDER
     Dosage: 50 MG, ONE DOSE
     Route: 048
  2. VYVANSE [Suspect]
     Dosage: 20 MG, 1X/DAY:QD
     Route: 048
     Dates: start: 2012
  3. VYVANSE [Suspect]
     Dosage: 30 MG, 1X/DAY:QD
     Route: 048
  4. VYVANSE [Suspect]
     Dosage: 40 MG, 1X/DAY:QD
     Route: 048
  5. VYVANSE [Suspect]
     Dosage: 50 MG, 1X/DAY:QD
     Route: 048
     Dates: end: 20130415
  6. VYVANSE [Suspect]
     Dosage: UNK (PARTIAL CONTENTS OF 50 MG CAPSULE), 1X/DAY:QD
     Route: 048
     Dates: start: 201303, end: 20130415
  7. ZOLOFT [Concomitant]
     Indication: MAJOR DEPRESSION
     Dosage: UNK, 1X/DAY:QD
     Route: 048
     Dates: start: 2011, end: 201303
  8. NEURONTIN [Concomitant]
     Indication: ANXIETY
     Dosage: UNK, 1X/DAY:QD
     Route: 048

REACTIONS (8)
  - Feeling of despair [Recovered/Resolved]
  - Drug diversion [Recovered/Resolved]
  - Malnutrition [Recovered/Resolved]
  - Adverse reaction [Recovered/Resolved]
  - Anxiety [Recovered/Resolved]
  - Drug ineffective [Recovered/Resolved]
  - Decreased appetite [Recovered/Resolved]
  - Wrong technique in drug usage process [Recovered/Resolved]
